FAERS Safety Report 8042824-8 (Version None)
Quarter: 2012Q1

REPORT INFORMATION
  Report Type: 
  Country: None (occurrence: None)
  Receive Date: 20120112
  Receipt Date: 20120104
  Transmission Date: 20120608
  Serious: Yes (Other)
  Sender: FDA-Public Use
  Company Number: CA-JNJFOC-20120103900

PATIENT
  Sex: Male
  Weight: 90 kg

DRUGS (8)
  1. LOMOTIL [Concomitant]
     Route: 048
  2. CHOLESTYRAMINE [Concomitant]
     Dosage: 1 PKG DAILY
  3. REMICADE [Suspect]
     Indication: COLITIS ULCERATIVE
     Route: 042
     Dates: start: 20100505
  4. SULFASALAZINE [Concomitant]
     Dosage: 1000 MG AM, 500 MG PM PLUS 1000 MG HS
     Route: 048
  5. REMICADE [Suspect]
     Indication: ANKYLOSING SPONDYLITIS
     Route: 042
     Dates: start: 20100505
  6. GLICLAZIDE [Concomitant]
     Route: 048
  7. FOLIC ACID [Concomitant]
     Route: 048
  8. METHOTREXATE [Concomitant]
     Route: 048

REACTIONS (1)
  - CYSTOSCOPY [None]
